FAERS Safety Report 6398660-1 (Version None)
Quarter: 2009Q4

REPORT INFORMATION
  Report Type: 
  Country: None (occurrence: None)
  Receive Date: 20091013
  Receipt Date: 20091005
  Transmission Date: 20100525
  Serious: Yes (Hospitalization, Other)
  Sender: FDA-Public Use
  Company Number: GB-MERCK-0910GBR00020

PATIENT
  Age: 50 Year
  Sex: Male
  Weight: 74 kg

DRUGS (5)
  1. ZOCOR [Suspect]
     Indication: MYOCARDIAL ISCHAEMIA
     Route: 048
     Dates: start: 20090421
  2. ALLOPURINOL [Concomitant]
     Route: 065
  3. ASPIRIN [Concomitant]
     Route: 065
  4. GLIMEPIRIDE [Concomitant]
     Route: 065
  5. METFORMIN [Concomitant]
     Route: 065

REACTIONS (4)
  - ABSCESS [None]
  - BACK PAIN [None]
  - RENAL FAILURE ACUTE [None]
  - RHABDOMYOLYSIS [None]
